FAERS Safety Report 16952894 (Version 1)
Quarter: 2019Q4

REPORT INFORMATION
  Report Type: Spontaneous
  Country: US (occurrence: US)
  Receive Date: 20191023
  Receipt Date: 20191023
  Transmission Date: 20200122
  Serious: No
  Sender: FDA-Public Use
  Company Number: US-TEVA-2019-US-1126261

PATIENT
  Age: 62 Year
  Sex: Female

DRUGS (4)
  1. FAMCICLOVIR. [Concomitant]
     Active Substance: FAMCICLOVIR
  2. ROSUVASTATIN. [Concomitant]
     Active Substance: ROSUVASTATIN
  3. CLONAZEPAM. [Concomitant]
     Active Substance: CLONAZEPAM
  4. COPAXONE [Suspect]
     Active Substance: GLATIRAMER ACETATE
     Indication: MULTIPLE SCLEROSIS
     Route: 058
     Dates: start: 20181002

REACTIONS (1)
  - Injection site reaction [Unknown]

NARRATIVE: CASE EVENT DATE: 20191014
